FAERS Safety Report 12590497 (Version 1)
Quarter: 2016Q3

REPORT INFORMATION
  Report Type: Report from Study
  Country: AU (occurrence: AU)
  Receive Date: 20160725
  Receipt Date: 20160725
  Transmission Date: 20161109
  Serious: Yes (Hospitalization)
  Sender: FDA-Public Use
  Company Number: AU-BIOGEN-2016BI00268176

PATIENT
  Age: 47 Year
  Sex: Female

DRUGS (3)
  1. PLEGRIDY [Suspect]
     Active Substance: PEGINTERFERON BETA-1A
     Route: 058
     Dates: start: 20160705
  2. PLEGRIDY [Suspect]
     Active Substance: PEGINTERFERON BETA-1A
     Route: 058
     Dates: start: 201606, end: 201606
  3. PLEGRIDY [Suspect]
     Active Substance: PEGINTERFERON BETA-1A
     Indication: MULTIPLE SCLEROSIS
     Route: 058
     Dates: start: 20151216, end: 201606

REACTIONS (8)
  - Appendicitis perforated [Recovered/Resolved]
  - Decreased immune responsiveness [Unknown]
  - Prescribed underdose [Unknown]
  - Nasopharyngitis [Unknown]
  - Influenza like illness [Recovered/Resolved]
  - Large intestine benign neoplasm [Unknown]
  - Infection [Unknown]
  - Injection site reaction [Recovered/Resolved]

NARRATIVE: CASE EVENT DATE: 201606
